FAERS Safety Report 16991523 (Version 1)
Quarter: 2019Q4

REPORT INFORMATION
  Report Type: Spontaneous
  Country: US (occurrence: US)
  Receive Date: 20191104
  Receipt Date: 20191104
  Transmission Date: 20200122
  Serious: No
  Sender: FDA-Public Use
  Company Number: US-ELI_LILLY_AND_COMPANY-US201910008522

PATIENT
  Sex: Female

DRUGS (4)
  1. MAXIL [AMOXICILLIN TRIHYDRATE] [Concomitant]
  2. TOPIRAMATE. [Concomitant]
     Active Substance: TOPIRAMATE
  3. EMGALITY [Suspect]
     Active Substance: GALCANEZUMAB-GNLM
     Dosage: 1 DOSAGE FORM, UNKNOWN
     Route: 065
  4. EMGALITY [Suspect]
     Active Substance: GALCANEZUMAB-GNLM
     Indication: PRODUCT USED FOR UNKNOWN INDICATION
     Dosage: 2 DOSAGE FORM, UNKNOWN
     Route: 065

REACTIONS (2)
  - Product dose omission [Not Recovered/Not Resolved]
  - Product dispensing error [Unknown]

NARRATIVE: CASE EVENT DATE: 20191012
